FAERS Safety Report 5827253-7 (Version None)
Quarter: 2008Q3

REPORT INFORMATION
  Report Type: 
  Country: None (occurrence: None)
  Receive Date: 20080730
  Receipt Date: 20080718
  Transmission Date: 20090109
  Serious: Yes (Other)
  Sender: FDA-Public Use
  Company Number: DE-ROCHE-576887

PATIENT
  Sex: Female

DRUGS (4)
  1. PEG-INTERFERON A-2A (RO 25-8310) [Suspect]
     Route: 058
     Dates: start: 20071015, end: 20080719
  2. RIBAVIRIN [Suspect]
     Route: 048
     Dates: start: 20071015, end: 20080719
  3. OMEPRAZOLE [Concomitant]
     Route: 048
     Dates: start: 20080610
  4. PARACODIN BITARTRATE TAB [Concomitant]
     Route: 048
     Dates: start: 20080618, end: 20080719

REACTIONS (1)
  - ASCITES [None]
